FAERS Safety Report 5204843-6 (Version None)
Quarter: 2007Q1

REPORT INFORMATION
  Report Type: 
  Country: None (occurrence: None)
  Receive Date: 20070110
  Receipt Date: 20060804
  Transmission Date: 20070707
  Serious: No
  Sender: FDA-Public Use
  Company Number: US-BRISTOL-MYERS SQUIBB COMPANY-13466644

PATIENT
  Age: 8 Year
  Sex: Female
  Weight: 28 kg

DRUGS (8)
  1. ABILIFY [Suspect]
     Indication: ANXIETY DISORDER
     Dates: start: 20060124
  2. ABILIFY [Suspect]
     Indication: ATTENTION DEFICIT/HYPERACTIVITY DISORDER
     Dates: start: 20060124
  3. ABILIFY [Suspect]
     Indication: OPPOSITIONAL DEFIANT DISORDER
     Dates: start: 20060124
  4. ABILIFY [Suspect]
     Indication: ADJUSTMENT DISORDER
     Dates: start: 20060124
  5. TRAZODONE HCL [Concomitant]
     Indication: ATTENTION DEFICIT/HYPERACTIVITY DISORDER
  6. TRAZODONE HCL [Concomitant]
     Indication: ANXIETY DISORDER
  7. PROVIGIL [Concomitant]
  8. BUSPAR [Concomitant]

REACTIONS (1)
  - EARLY MENARCHE [None]
